FAERS Safety Report 7961833-8 (Version None)
Quarter: 2011Q4

REPORT INFORMATION
  Report Type: 
  Country: None (occurrence: None)
  Receive Date: 20111207
  Receipt Date: 20111207
  Transmission Date: 20120403
  Serious: Yes (Other)
  Sender: FDA-Public Use
  Company Number: None

PATIENT
  Age: 58 Year
  Sex: Female
  Weight: 52 kg

DRUGS (7)
  1. NICOTINE [Suspect]
     Indication: SMOKING CESSATION THERAPY
     Dosage: 1 PATCH
     Route: 061
     Dates: start: 20111202, end: 20111204
  2. HEPARIN [Concomitant]
     Route: 058
  3. VICODIN [Concomitant]
  4. NEXIUM [Concomitant]
  5. COLACE [Concomitant]
  6. CALCIUM CARBONATE [Concomitant]
  7. DULCOLAX [Concomitant]

REACTIONS (1)
  - APPLICATION SITE ERYTHEMA [None]
